FAERS Safety Report 12784595 (Version 1)
Quarter: 2016Q3

REPORT INFORMATION
  Report Type: Report from Study
  Country: AU (occurrence: AU)
  Receive Date: 20160927
  Receipt Date: 20160927
  Transmission Date: 20161109
  Serious: Yes (Other)
  Sender: FDA-Public Use
  Company Number: AU-REGENERON PHARMACEUTICALS, INC.-2015-12452

PATIENT

DRUGS (2)
  1. EYLEA [Suspect]
     Active Substance: AFLIBERCEPT
     Dosage: 2 MG, 14 WEEKLY
     Route: 031
     Dates: start: 20141015
  2. EYLEA [Suspect]
     Active Substance: AFLIBERCEPT
     Indication: NEOVASCULAR AGE-RELATED MACULAR DEGENERATION
     Dosage: 2 MG, 12 WEEKLY
     Route: 031
     Dates: start: 20141015

REACTIONS (7)
  - Eyelid bleeding [Unknown]
  - Cataract operation [Unknown]
  - Bronchitis [Recovered/Resolved]
  - Tonsillitis [Recovered/Resolved]
  - Neurological infection [Recovered/Resolved]
  - Vitreous floaters [Unknown]
  - Eyelid disorder [Unknown]

NARRATIVE: CASE EVENT DATE: 2014
